FAERS Safety Report 9066128 (Version 5)
Quarter: 2014Q3

REPORT INFORMATION
  Report Type: Spontaneous
  Country: JP (occurrence: JP)
  Receive Date: 20130214
  Receipt Date: 20140812
  Transmission Date: 20150326
  Serious: Yes (Death, Life-Threatening, Other)
  Sender: FDA-Public Use
  Company Number: PHHY2013JP014446

PATIENT
  Age: 61 Year
  Sex: Female
  Weight: 53 kg

DRUGS (7)
  1. PREDNISOLONE. [Suspect]
     Active Substance: PREDNISOLONE
     Indication: INTERSTITIAL LUNG DISEASE
     Dosage: 30 MG, UNK
     Route: 048
  2. NEORAL [Suspect]
     Active Substance: CYCLOSPORINE
     Indication: INTERSTITIAL LUNG DISEASE
  3. AZATHIOPRINE. [Suspect]
     Active Substance: AZATHIOPRINE
     Indication: INTERSTITIAL LUNG DISEASE
     Dosage: 30 MG, UNK
     Route: 048
  4. ADRENAL CORTEX PREPARATIONS [Suspect]
     Active Substance: UNSPECIFIED INGREDIENT
  5. NEORAL [Suspect]
     Active Substance: CYCLOSPORINE
     Indication: DERMATOMYOSITIS
     Route: 048
  6. CYCLOPHOSPHAMIDE. [Concomitant]
     Active Substance: CYCLOPHOSPHAMIDE
     Indication: DERMATOMYOSITIS
     Route: 042
  7. NEORAL [Suspect]
     Active Substance: CYCLOSPORINE
     Indication: OFF LABEL USE

REACTIONS (7)
  - Cytomegalovirus viraemia [Fatal]
  - Thrombotic thrombocytopenic purpura [Fatal]
  - Renal disorder [Unknown]
  - Red cell fragmentation syndrome [Unknown]
  - Transfusion-related acute lung injury [Unknown]
  - Multi-organ failure [Fatal]
  - Haemolytic anaemia [Unknown]
